FAERS Safety Report 7483967-7 (Version None)
Quarter: 2011Q2

REPORT INFORMATION
  Report Type: 
  Country: None (occurrence: None)
  Receive Date: 20110517
  Receipt Date: 20110506
  Transmission Date: 20111010
  Serious: Yes (Hospitalization)
  Sender: FDA-Public Use
  Company Number: DE-JNJFOC-20110502835

PATIENT
  Sex: Male
  Weight: 73 kg

DRUGS (3)
  1. ABIRATERONE ACETATE [Suspect]
     Route: 048
  2. ABIRATERONE ACETATE [Suspect]
     Indication: PROSTATE CANCER METASTATIC
     Route: 048
     Dates: start: 20110426
  3. FENTANYL [Concomitant]
     Indication: PROSTATE CANCER
     Route: 062
     Dates: start: 20110407

REACTIONS (2)
  - CONSTIPATION [None]
  - PAIN [None]
